FAERS Safety Report 5734229-7 (Version None)
Quarter: 2008Q2

REPORT INFORMATION
  Report Type: 
  Country: None (occurrence: None)
  Receive Date: 20080512
  Receipt Date: 20080415
  Transmission Date: 20081010
  Serious: No
  Sender: FDA-Public Use
  Company Number: US-BAYER-200819534NA

PATIENT
  Sex: Female

DRUGS (1)
  1. MIRENA [Suspect]
     Indication: DRUG USE FOR UNKNOWN INDICATION
     Route: 015

REACTIONS (6)
  - BREAST TENDERNESS [None]
  - MENSTRUATION DELAYED [None]
  - PREGNANCY WITH CONTRACEPTIVE DEVICE [None]
  - PRESYNCOPE [None]
  - PROCEDURAL PAIN [None]
  - VAGINAL HAEMORRHAGE [None]
